FAERS Safety Report 8043831-1 (Version None)
Quarter: 2012Q1

REPORT INFORMATION
  Report Type: 
  Country: None (occurrence: None)
  Receive Date: 20120113
  Receipt Date: 20120105
  Transmission Date: 20120608
  Serious: No
  Sender: FDA-Public Use
  Company Number: US-BIOGENIDEC-2012BI000592

PATIENT
  Sex: Female

DRUGS (2)
  1. TYSABRI [Suspect]
     Indication: MULTIPLE SCLEROSIS
     Route: 042
     Dates: start: 20110620, end: 20110725
  2. IV IMMUNOGLOBULINS [Concomitant]

REACTIONS (3)
  - DRUG SPECIFIC ANTIBODY PRESENT [None]
  - DERMATITIS CONTACT [None]
  - URTICARIA [None]
